FAERS Safety Report 6701134-9 (Version None)
Quarter: 2010Q2

REPORT INFORMATION
  Report Type: 
  Country: None (occurrence: None)
  Receive Date: 20100428
  Receipt Date: 20100421
  Transmission Date: 20101027
  Serious: Yes (Hospitalization)
  Sender: FDA-Public Use
  Company Number: US-AMGEN-KDL407723

PATIENT
  Sex: Male

DRUGS (2)
  1. ENBREL [Suspect]
     Indication: PSORIATIC ARTHROPATHY
     Route: 058
     Dates: start: 20050401
  2. METHOTREXATE [Concomitant]
     Route: 048

REACTIONS (4)
  - HIP ARTHROPLASTY [None]
  - JOINT EFFUSION [None]
  - MENISCUS LESION [None]
  - PARAESTHESIA [None]
